FAERS Safety Report 9682592 (Version 2)
Quarter: 2014Q1

REPORT INFORMATION
  Report Type: Spontaneous
  Country: GB (occurrence: GB)
  Receive Date: 20131016
  Receipt Date: 20140124
  Transmission Date: 20141002
  Serious: Yes (Hospitalization, Other)
  Sender: FDA-Public Use
  Company Number: GB-DRREDDYS-GER/UKI/13/0034845

PATIENT
  Age: 21 Year
  Sex: Male
  Weight: 111.6 kg

DRUGS (11)
  1. RISPERIDONE [Suspect]
     Indication: SCHIZOPHRENIA
     Route: 048
     Dates: end: 20130721
  2. RISPERIDONE [Suspect]
     Route: 048
     Dates: start: 20130721
  3. ZAPONEX [Suspect]
     Indication: SCHIZOPHRENIA
     Route: 048
     Dates: start: 20130705, end: 20130720
  4. ZAPONEX [Suspect]
     Route: 048
     Dates: start: 20130720
  5. EPILIM [Concomitant]
     Indication: EPILEPSY
     Route: 048
  6. EPILIM [Concomitant]
     Indication: MOOD ALTERED
  7. KWELLS [Concomitant]
     Indication: SALIVARY HYPERSECRETION
     Route: 048
  8. LORAZEPAM [Concomitant]
     Indication: PRODUCT USED FOR UNKNOWN INDICATION
  9. HYOSCINE HYDROBROMIDE [Concomitant]
     Indication: PRODUCT USED FOR UNKNOWN INDICATION
  10. VALPROATE SODIUM [Concomitant]
     Indication: PRODUCT USED FOR UNKNOWN INDICATION
  11. ZOPICLONE [Concomitant]
     Indication: PRODUCT USED FOR UNKNOWN INDICATION

REACTIONS (10)
  - Hypertension [Recovered/Resolved]
  - Blood creatine phosphokinase increased [Recovered/Resolved]
  - C-reactive protein increased [Recovered/Resolved]
  - Pyrexia [Recovered/Resolved]
  - Platelet count decreased [Recovered/Resolved]
  - Hyperhidrosis [Recovered/Resolved]
  - Tachycardia [Recovered/Resolved]
  - Neuroleptic malignant syndrome [Recovered/Resolved]
  - Red blood cell count decreased [Recovered/Resolved]
  - Viral infection [Recovered/Resolved]
